FAERS Safety Report 12491899 (Version 4)
Quarter: 2016Q4

REPORT INFORMATION
  Report Type: Report from Study
  Country: JP (occurrence: JP)
  Receive Date: 20160623
  Receipt Date: 20161201
  Transmission Date: 20170207
  Serious: Yes (Death, Disabling, Other)
  Sender: FDA-Public Use
  Company Number: JP-BRISTOL-MYERS SQUIBB COMPANY-BMS-2016-039763

PATIENT
  Age: 85 Year
  Sex: Male

DRUGS (9)
  1. IPILIMUMAB [Suspect]
     Active Substance: IPILIMUMAB
     Indication: PRODUCT USED FOR UNKNOWN INDICATION
     Dosage: 3 MG/KG, UNK
     Route: 041
     Dates: start: 20160506
  2. IPILIMUMAB [Suspect]
     Active Substance: IPILIMUMAB
     Indication: PRODUCT USED FOR UNKNOWN INDICATION
     Dosage: 3 MG/KG, UNK
     Route: 041
     Dates: start: 20160413
  3. IPILIMUMAB [Suspect]
     Active Substance: IPILIMUMAB
     Indication: MALIGNANT MELANOMA
     Dosage: 3 MG/KG, UNK
     Route: 041
     Dates: start: 20160302
  4. IRBETAN [Concomitant]
     Active Substance: IRBESARTAN
     Indication: HYPERTENSION
     Dosage: UNK
     Route: 065
     Dates: start: 20160301, end: 20160720
  5. ARTIST [Concomitant]
     Active Substance: CARVEDILOL
     Indication: HYPERTENSION
     Dosage: UNK
     Route: 065
     Dates: start: 20160301, end: 20160720
  6. IPILIMUMAB [Suspect]
     Active Substance: IPILIMUMAB
     Indication: PRODUCT USED FOR UNKNOWN INDICATION
     Dosage: 3 MG/KG, UNK
     Route: 041
     Dates: start: 20160323
  7. TRICHLORMETHIAZIDE [Concomitant]
     Active Substance: TRICHLORMETHIAZIDE
     Indication: HYPERTENSION
     Dosage: UNK
     Route: 065
     Dates: start: 20160301, end: 20160720
  8. HARNAL [Concomitant]
     Active Substance: TAMSULOSIN HYDROCHLORIDE
     Indication: BENIGN PROSTATIC HYPERPLASIA
     Dosage: UNK
     Route: 065
     Dates: start: 20160301, end: 20160720
  9. ATELEC [Concomitant]
     Active Substance: CILNIDIPINE
     Indication: HYPERTENSION
     Dosage: UNK
     Route: 065
     Dates: start: 20160301, end: 20160720

REACTIONS (4)
  - Haematuria [Recovered/Resolved]
  - Malignant neoplasm progression [Fatal]
  - Back pain [Recovering/Resolving]
  - Vitreous floaters [Recovered/Resolved]

NARRATIVE: CASE EVENT DATE: 20160302
